FAERS Safety Report 16901156 (Version 1)
Quarter: 2019Q4

REPORT INFORMATION
  Report Type: Spontaneous
  Country: NL (occurrence: NL)
  Receive Date: 20191009
  Receipt Date: 20191009
  Transmission Date: 20200122
  Serious: Yes (Hospitalization)
  Sender: FDA-Public Use
  Company Number: NL-ELI_LILLY_AND_COMPANY-NL201909014259

PATIENT
  Age: 43 Year
  Sex: Male
  Weight: 62 kg

DRUGS (7)
  1. OMEPRAZOL [OMEPRAZOLE] [Concomitant]
     Active Substance: OMEPRAZOLE
     Dosage: 1DD1
  2. DIVISUN [Concomitant]
     Active Substance: CHOLECALCIFEROL
     Dosage: 1DD1
  3. LORAZEPAM. [Concomitant]
     Active Substance: LORAZEPAM
     Dosage: 1 TABLET IF NECESSARY
  4. FERROUS SULFATE. [Concomitant]
     Active Substance: FERROUS SULFATE
     Dosage: 1DD1
  5. ZYPADHERA [Suspect]
     Active Substance: OLANZAPINE PAMOATE
     Indication: PSYCHOTIC DISORDER
     Dosage: 405 MG, 2/M
     Route: 030
     Dates: start: 20170217
  6. OLANZAPINE. [Concomitant]
     Active Substance: OLANZAPINE
     Dosage: 1DD1
  7. ZOPICLON [Concomitant]
     Active Substance: ZOPICLONE
     Dosage: 1DD1-2 TABL ZN

REACTIONS (4)
  - Abnormal behaviour [Recovered/Resolved]
  - Confusional state [Recovered/Resolved]
  - Restlessness [Recovered/Resolved]
  - Delirium [Recovered/Resolved]

NARRATIVE: CASE EVENT DATE: 20190913
